FAERS Safety Report 21438783 (Version 1)
Quarter: 2022Q4

REPORT INFORMATION
  Report Type: Spontaneous
  Country: US (occurrence: None)
  Receive Date: 20221007
  Receipt Date: 20221007
  Transmission Date: 20230113
  Serious: Yes (Other)
  Sender: FDA-Public Use
  Company Number: None

PATIENT
  Age: 68 Year
  Sex: Male
  Weight: 90 kg

DRUGS (1)
  1. BEBTELOVIMAB [Suspect]
     Active Substance: BEBTELOVIMAB
     Route: 042

REACTIONS (4)
  - Hyperhidrosis [None]
  - Dizziness [None]
  - Pallor [None]
  - Blood pressure decreased [None]

NARRATIVE: CASE EVENT DATE: 20221007
